FAERS Safety Report 7291631-2 (Version None)
Quarter: 2011Q1

REPORT INFORMATION
  Report Type: 
  Country: None (occurrence: None)
  Receive Date: 20110214
  Receipt Date: 20110203
  Transmission Date: 20110831
  Serious: Yes (Hospitalization)
  Sender: FDA-Public Use
  Company Number: AT-JNJFOC-20100506938

PATIENT
  Sex: Male
  Weight: 68 kg

DRUGS (9)
  1. GOLIMUMAB [Suspect]
     Indication: RHEUMATOID ARTHRITIS
     Route: 058
  2. FOLSAN [Concomitant]
     Route: 048
  3. ZURCAL [Concomitant]
     Route: 048
  4. EBETREXAT [Concomitant]
     Route: 048
  5. GOLIMUMAB [Suspect]
     Route: 058
  6. PANTOLOC [Concomitant]
     Route: 048
  7. GOLIMUMAB [Suspect]
     Route: 058
  8. VOLTAREN [Concomitant]
     Route: 048
  9. GOLIMUMAB [Suspect]
     Route: 058

REACTIONS (7)
  - DIVERTICULITIS [None]
  - URINARY BLADDER ABSCESS [None]
  - VESICAL FISTULA [None]
  - PNEUMONIA [None]
  - RENAL FAILURE [None]
  - COLITIS [None]
  - URINARY TRACT INFECTION [None]
